FAERS Safety Report 4877577-5 (Version None)
Quarter: 2006Q1

REPORT INFORMATION
  Report Type: 
  Country: None (occurrence: None)
  Receive Date: 20060111
  Receipt Date: 20060104
  Transmission Date: 20060701
  Serious: Yes (Other)
  Sender: FDA-Public Use
  Company Number: CH-GLAXOSMITHKLINE-B0405841A

PATIENT
  Age: 49 Year
  Sex: Female
  Weight: 52 kg

DRUGS (4)
  1. LAMICTAL [Suspect]
     Dosage: 25MG PER DAY
     Route: 048
     Dates: start: 20051117, end: 20051126
  2. PRIADEL [Concomitant]
     Dosage: 400MG TWICE PER DAY
     Route: 048
     Dates: start: 19900101
  3. SOMNIUM [Concomitant]
     Indication: DRUG USE FOR UNKNOWN INDICATION
     Dosage: 25MG PER DAY
     Route: 048
     Dates: start: 20050101
  4. TEMESTA [Concomitant]
     Indication: DRUG USE FOR UNKNOWN INDICATION
     Dosage: 1MG AS REQUIRED
     Route: 048
     Dates: start: 20050101

REACTIONS (9)
  - ANOREXIA [None]
  - ASTHENOPIA [None]
  - DRY SKIN [None]
  - ERYTHEMA [None]
  - FACE OEDEMA [None]
  - NAUSEA [None]
  - PRURITUS [None]
  - PYREXIA [None]
  - RASH [None]
